FAERS Safety Report 20989212 (Version 1)
Quarter: 2022Q2

REPORT INFORMATION
  Report Type: Spontaneous
  Country: DE (occurrence: DE)
  Receive Date: 20220621
  Receipt Date: 20220621
  Transmission Date: 20220721
  Serious: Yes (Death, Other)
  Sender: FDA-Public Use
  Company Number: DE-GILEAD-2022-0586379

PATIENT
  Sex: Female

DRUGS (1)
  1. TRODELVY [Suspect]
     Active Substance: SACITUZUMAB GOVITECAN-HZIY
     Indication: Metastasis
     Dosage: UNK, C1 D1
     Route: 065

REACTIONS (2)
  - Death [Fatal]
  - Neutropenia [Unknown]
